FAERS Safety Report 17889985 (Version 1)
Quarter: 2020Q2

REPORT INFORMATION
  Report Type: Spontaneous
  Country: NL (occurrence: NL)
  Receive Date: 20200612
  Receipt Date: 20200612
  Transmission Date: 20200714
  Serious: Yes (Other)
  Sender: FDA-Public Use
  Company Number: NL-TEVA-2020-NL-1247442

PATIENT
  Sex: Male
  Weight: 34 kg

DRUGS (1)
  1. METHYLFENIDAAT [Suspect]
     Active Substance: METHYLPHENIDATE HYDROCHLORIDE
     Indication: ATTENTION DEFICIT HYPERACTIVITY DISORDER
     Dosage: 6 DOSAGE FORMS DAILY; 3X2
     Dates: start: 201902, end: 20200504

REACTIONS (5)
  - Anxiety [Recovering/Resolving]
  - Restlessness [Not Recovered/Not Resolved]
  - Aggression [Not Recovered/Not Resolved]
  - Intentional self-injury [Recovering/Resolving]
  - Depressed mood [Recovering/Resolving]
